FAERS Safety Report 6032891-5 (Version None)
Quarter: 2009Q1

REPORT INFORMATION
  Report Type: 
  Country: None (occurrence: None)
  Receive Date: 20090107
  Receipt Date: 20090107
  Transmission Date: 20090719
  Serious: Yes (Other)
  Sender: FDA-Public Use
  Company Number: None

PATIENT
  Age: 2 Year
  Sex: Male
  Weight: 14.0615 kg

DRUGS (2)
  1. CEFDINIR [Suspect]
     Indication: BACTERIAL INFECTION
     Dosage: 1ML 2X/DAILY PO
     Route: 048
  2. CEFDINIR [Suspect]
     Indication: CONJUNCTIVITIS
     Dosage: 1ML 2X/DAILY PO
     Route: 048

REACTIONS (7)
  - COUGH [None]
  - DRUG HYPERSENSITIVITY [None]
  - PRURITUS [None]
  - PYREXIA [None]
  - RASH [None]
  - URTICARIA [None]
  - VIRAL INFECTION [None]
